FAERS Safety Report 6156517-5 (Version None)
Quarter: 2009Q2

REPORT INFORMATION
  Report Type: 
  Country: None (occurrence: None)
  Receive Date: 20090413
  Receipt Date: 20090225
  Transmission Date: 20091009
  Serious: Yes (Life-Threatening, Hospitalization)
  Sender: FDA-Public Use
  Company Number: OPER20090044

PATIENT
  Age: 42 Year
  Sex: Female

DRUGS (2)
  1. OPANA ER [Suspect]
     Indication: BACK PAIN
     Dosage: 30 MG, BID, PER ORAL
     Route: 048
     Dates: start: 20081201, end: 20090201
  2. KLONOPIN [Suspect]
     Indication: INSOMNIA

REACTIONS (2)
  - ALCOHOL USE [None]
  - RESPIRATORY ARREST [None]
